FAERS Safety Report 9975688 (Version 1)
Quarter: 2014Q1

REPORT INFORMATION
  Report Type: Report from Study
  Country: US (occurrence: US)
  Receive Date: 20140306
  Receipt Date: 20140306
  Transmission Date: 20141002
  Serious: No
  Sender: FDA-Public Use
  Company Number: US-ABBVIE-13P-163-1160432-00

PATIENT
  Age: 47 Year
  Sex: Female

DRUGS (9)
  1. HUMIRA [Suspect]
     Indication: CROHN^S DISEASE
     Dates: start: 20130715
  2. AXID [Concomitant]
     Indication: GASTROOESOPHAGEAL REFLUX DISEASE
  3. COUMADIN [Concomitant]
     Indication: THROMBOSIS
  4. EFFEXOR [Concomitant]
     Indication: DEPRESSION
  5. IMITREX [Concomitant]
     Indication: MIGRAINE
     Dosage: PILLS
  6. NASACORT [Concomitant]
     Indication: HYPERSENSITIVITY
     Dosage: NASAL SPRAY EACH NOSTRIL
     Route: 045
  7. FOLTX [Concomitant]
     Indication: BLOOD HOMOCYSTEINE
     Dosage: PILL
  8. DEPO PROVERA [Concomitant]
     Indication: CONTRACEPTION
     Dosage: SHOTS EVERY THREE MONTHS
  9. IMITREX [Concomitant]
     Indication: MIGRAINE

REACTIONS (1)
  - Pilonidal cyst [Recovering/Resolving]
